FAERS Safety Report 24349123 (Version 1)
Quarter: 2024Q3

REPORT INFORMATION
  Report Type: Report from Study
  Country: US (occurrence: US)
  Receive Date: 20240923
  Receipt Date: 20240923
  Transmission Date: 20241017
  Serious: Yes (Hospitalization, Other)
  Sender: ABBVIE
  Company Number: US-ABBVIE-5930052

PATIENT
  Age: 71 Year
  Sex: Female

DRUGS (1)
  1. HUMIRA [Suspect]
     Active Substance: ADALIMUMAB
     Indication: Psoriasis
     Route: 058
     Dates: start: 202403

REACTIONS (3)
  - Renal artery stent placement [Recovering/Resolving]
  - Hypertension [Recovering/Resolving]
  - Renal artery stent placement [Recovering/Resolving]

NARRATIVE: CASE EVENT DATE: 20240301
